FAERS Safety Report 19451349 (Version 2)
Quarter: 2021Q3

REPORT INFORMATION
  Report Type: Report from Study
  Country: US (occurrence: US)
  Receive Date: 20210623
  Receipt Date: 20210820
  Transmission Date: 20211014
  Serious: Yes (Hospitalization)
  Sender: FDA-Public Use
  Company Number: US-BIOGEN-2021BI01022469

PATIENT
  Age: 71 Year
  Sex: Male

DRUGS (2)
  1. TYSABRI [Suspect]
     Active Substance: NATALIZUMAB
     Route: 065
     Dates: start: 20121109
  2. TYSABRI [Suspect]
     Active Substance: NATALIZUMAB
     Indication: MULTIPLE SCLEROSIS
     Route: 065
     Dates: start: 20061012, end: 20090422

REACTIONS (5)
  - Cardiac disorder [Unknown]
  - Presyncope [Unknown]
  - White matter lesion [Unknown]
  - Incoherent [Unknown]
  - Mental status changes [Unknown]

NARRATIVE: CASE EVENT DATE: 20210417
